FAERS Safety Report 16750297 (Version 1)
Quarter: 2019Q3

REPORT INFORMATION
  Report Type: Spontaneous
  Country: US (occurrence: US)
  Receive Date: 20190828
  Receipt Date: 20190828
  Transmission Date: 20191005
  Serious: No
  Sender: FDA-Public Use
  Company Number: US-SHIRE-US201928003

PATIENT
  Sex: Female

DRUGS (6)
  1. ZANTAC [Concomitant]
     Active Substance: RANITIDINE HYDROCHLORIDE
     Indication: PRODUCT USED FOR UNKNOWN INDICATION
     Dosage: UNK
     Route: 065
  2. CUVITRU [Suspect]
     Active Substance: HUMAN IMMUNOGLOBULIN G
     Dosage: 2 GRAM, UNKNOWN
     Route: 050
     Dates: start: 20190806
  3. CUVITRU [Suspect]
     Active Substance: HUMAN IMMUNOGLOBULIN G
     Dosage: 2 GRAM, UNKNOWN
     Route: 058
     Dates: start: 20190815
  4. CUVITRU [Suspect]
     Active Substance: HUMAN IMMUNOGLOBULIN G
     Dosage: 6 GRAM, UNKNOWN
     Route: 065
     Dates: start: 20190822
  5. BENADRYL [Concomitant]
     Active Substance: DIPHENHYDRAMINE HYDROCHLORIDE
     Indication: PRODUCT USED FOR UNKNOWN INDICATION
     Dosage: UNK
     Route: 065
  6. CUVITRU [Suspect]
     Active Substance: HUMAN IMMUNOGLOBULIN G
     Indication: PRODUCT USED FOR UNKNOWN INDICATION
     Dosage: 12 GRAM, 1X/WEEK
     Route: 065
     Dates: start: 20190730

REACTIONS (9)
  - Malaise [Unknown]
  - Occipital neuralgia [Unknown]
  - Chest discomfort [Recovering/Resolving]
  - Depressed mood [Unknown]
  - Neck pain [Unknown]
  - Musculoskeletal pain [Unknown]
  - Headache [Unknown]
  - Dysphonia [Unknown]
  - Pyrexia [Recovered/Resolved]
